FAERS Safety Report 20566953 (Version 2)
Quarter: 2022Q1

REPORT INFORMATION
  Report Type: Spontaneous
  Country: AU (occurrence: AU)
  Receive Date: 20220308
  Receipt Date: 20220318
  Transmission Date: 20220423
  Serious: Yes (Hospitalization)
  Sender: FDA-Public Use
  Company Number: AU-BAUSCH-BL-2022-005772

PATIENT
  Age: 78 Year
  Sex: Male

DRUGS (3)
  1. BENOXINATE HYDROCHLORIDE [Suspect]
     Active Substance: BENOXINATE HYDROCHLORIDE
     Indication: Product used for unknown indication
     Route: 065
  2. CYCLOPENTOLATE HYDROCHLORIDE [Suspect]
     Active Substance: CYCLOPENTOLATE HYDROCHLORIDE
     Indication: Product used for unknown indication
     Route: 065
  3. PHENYLEPHRINE HYDROCHLORIDE [Suspect]
     Active Substance: PHENYLEPHRINE HYDROCHLORIDE
     Indication: Product used for unknown indication
     Route: 065

REACTIONS (1)
  - Loss of consciousness [Recovered/Resolved]
